FAERS Safety Report 21793785 (Version 1)
Quarter: 2022Q4

REPORT INFORMATION
  Report Type: Report from Study
  Country: US (occurrence: US)
  Receive Date: 20221229
  Receipt Date: 20221229
  Transmission Date: 20230113
  Serious: No
  Sender: FDA-Public Use
  Company Number: US-ABBVIE-4252414

PATIENT
  Sex: Female

DRUGS (1)
  1. CREON [Suspect]
     Active Substance: PANCRELIPASE AMYLASE\PANCRELIPASE LIPASE\PANCRELIPASE PROTEASE
     Indication: Product used for unknown indication
     Dosage: PRODUCT (CREON) - FORM STRENGTH: 36000 UNIT?FREQUENCY TEXT: TWO CAPSULES WITH MEALS AND ONE WITH ...
     Route: 048

REACTIONS (2)
  - COVID-19 [Unknown]
  - Bronchitis [Unknown]
